FAERS Safety Report 6527581-6 (Version None)
Quarter: 2010Q1

REPORT INFORMATION
  Report Type: 
  Country: None (occurrence: None)
  Receive Date: 20100105
  Receipt Date: 20091225
  Transmission Date: 20100710
  Serious: Yes (Hospitalization, Other)
  Sender: FDA-Public Use
  Company Number: PHHY2009JP48880

PATIENT
  Age: 87 Year
  Sex: Male

DRUGS (5)
  1. TEGRETOL [Suspect]
     Indication: SENILE DEMENTIA
     Dosage: 200 MG DAILY
     Route: 048
     Dates: start: 20050303, end: 20090101
  2. RISPERDAL [Suspect]
     Indication: SENILE DEMENTIA
     Dosage: 2 MG DAILY
     Route: 048
     Dates: start: 20050303
  3. AMARYL [Suspect]
     Dosage: 1 MG DAILY
     Route: 048
     Dates: start: 20050303
  4. CERNILTON [Suspect]
     Dosage: 4 DF DAILY
     Route: 048
     Dates: start: 20050303
  5. DEPAKENE [Concomitant]

REACTIONS (5)
  - COMMUNICATION DISORDER [None]
  - CYANOSIS [None]
  - DELUSION [None]
  - MALAISE [None]
  - SINUS BRADYCARDIA [None]
